FAERS Safety Report 11181769 (Version 1)
Quarter: 2015Q2

REPORT INFORMATION
  Report Type: Other
  Country: TR (occurrence: TR)
  Receive Date: 20150611
  Receipt Date: 20150611
  Transmission Date: 20150821
  Serious: Yes (Hospitalization)
  Sender: FDA-Public Use
  Company Number: TR-PURDUE PHARMA-CAN-2015-0005828

PATIENT
  Age: 9 Year
  Sex: Male

DRUGS (5)
  1. METHYLPHENIDATE HYDROCHLORIDE. [Suspect]
     Active Substance: METHYLPHENIDATE HYDROCHLORIDE
     Indication: ATTENTION DEFICIT/HYPERACTIVITY DISORDER
     Dosage: 27 MG, UNK
     Route: 065
  2. RISPERIDONE. [Suspect]
     Active Substance: RISPERIDONE
     Indication: ABNORMAL BEHAVIOUR
     Dosage: 0.5 MG, UNK
     Route: 065
  3. METHYLPHENIDATE HYDROCHLORIDE. [Suspect]
     Active Substance: METHYLPHENIDATE HYDROCHLORIDE
     Indication: CONDUCT DISORDER
     Dosage: 36 MG, UNK
     Route: 065
  4. RISPERIDONE. [Suspect]
     Active Substance: RISPERIDONE
     Dosage: 3 MG, UNK
     Route: 065
  5. METHYLPHENIDATE HYDROCHLORIDE. [Suspect]
     Active Substance: METHYLPHENIDATE HYDROCHLORIDE
     Dosage: 54 MG, UNK
     Route: 065

REACTIONS (8)
  - Drug ineffective [Unknown]
  - Dystonia [Unknown]
  - Treatment noncompliance [Unknown]
  - Extrapyramidal disorder [Unknown]
  - Restlessness [Unknown]
  - Irritability [Unknown]
  - Drug interaction [Unknown]
  - Abnormal behaviour [Unknown]
